FAERS Safety Report 4445494-0 (Version None)
Quarter: 2004Q3

REPORT INFORMATION
  Report Type: 
  Country: None (occurrence: None)
  Receive Date: 20040811
  Receipt Date: 20040407
  Transmission Date: 20050211
  Serious: Yes (Other)
  Sender: FDA-Public Use
  Company Number: 2004S1001009

PATIENT
  Age: 43 Year
  Sex: Female

DRUGS (1)
  1. SPIRONOLACTONE [Suspect]
     Indication: HYPERALDOSTERONISM
     Dosage: 25 MG QD, THEN 25MG BID, ORAL; EARLY
     Route: 048
     Dates: start: 20040201

REACTIONS (5)
  - DIZZINESS [None]
  - HYPOTENSION [None]
  - MENSTRUAL DISCOMFORT [None]
  - MENSTRUAL DISORDER [None]
  - VENTRICULAR EXTRASYSTOLES [None]
